FAERS Safety Report 10682550 (Version 1)
Quarter: 2014Q4

REPORT INFORMATION
  Report Type: Spontaneous
  Country: US (occurrence: None)
  Receive Date: 20141229
  Receipt Date: 20141229
  Transmission Date: 20150529
  Serious: No
  Sender: FDA-Public Use
  Company Number: None

PATIENT

DRUGS (1)
  1. TUSSIN COUGH [Suspect]
     Active Substance: DEXTROMETHORPHAN HYDROBROMIDE
     Dates: start: 20141218, end: 20141219

REACTIONS (4)
  - Product quality issue [None]
  - Foreign body [None]
  - Intestinal haemorrhage [None]
  - Product contamination physical [None]

NARRATIVE: CASE EVENT DATE: 20141219
